FAERS Safety Report 6780126-8 (Version None)
Quarter: 2010Q2

REPORT INFORMATION
  Report Type: 
  Country: None (occurrence: None)
  Receive Date: 20100618
  Receipt Date: 20100608
  Transmission Date: 20101027
  Serious: Yes (Death, Hospitalization)
  Sender: FDA-Public Use
  Company Number: GR-GILEAD-E2B_00000751

PATIENT
  Age: 55 Year
  Sex: Male

DRUGS (2)
  1. AMBRISENTAN [Suspect]
     Indication: PULMONARY HYPERTENSION
     Dosage: 5MG PER DAY
     Route: 065
     Dates: start: 20100507
  2. SILDENAFIL [Suspect]
     Indication: DRUG USE FOR UNKNOWN INDICATION
     Dosage: 20MG THREE TIMES PER DAY
     Route: 048
     Dates: start: 20100101

REACTIONS (2)
  - CARDIAC FAILURE CHRONIC [None]
  - RENAL FAILURE [None]
